FAERS Safety Report 17206300 (Version 1)
Quarter: 2019Q4

REPORT INFORMATION
  Report Type: Spontaneous
  Country: US (occurrence: US)
  Receive Date: 20191227
  Receipt Date: 20191227
  Transmission Date: 20200122
  Serious: Yes (Hospitalization, Other)
  Sender: FDA-Public Use
  Company Number: US-ELI_LILLY_AND_COMPANY-US201912011167

PATIENT
  Age: 31 Year
  Sex: Female

DRUGS (5)
  1. HUMULIN R [Suspect]
     Active Substance: INSULIN HUMAN
     Dosage: 60 U, TID
     Route: 065
  2. HUMULIN R [Suspect]
     Active Substance: INSULIN HUMAN
     Indication: GESTATIONAL DIABETES
     Dosage: 45 U, UNKNOWN
     Route: 065
     Dates: start: 1994, end: 2019
  3. HUMULIN R [Suspect]
     Active Substance: INSULIN HUMAN
     Indication: DIABETES MELLITUS
     Dosage: 45 U, UNKNOWN
     Route: 065
  4. LANTUS [Concomitant]
     Active Substance: INSULIN GLARGINE
     Indication: PRODUCT USED FOR UNKNOWN INDICATION
     Dosage: 85 U, EACH EVENING (NIGHT)
  5. HUMULIN R [Suspect]
     Active Substance: INSULIN HUMAN
     Dosage: UNK UNK, TID
     Route: 065
     Dates: end: 2019

REACTIONS (9)
  - Haemorrhage [Recovered/Resolved]
  - Wrong technique in product usage process [Unknown]
  - Maternal exposure during pregnancy [Recovered/Resolved]
  - Product dose omission [Unknown]
  - Impaired healing [Recovered/Resolved]
  - Gait inability [Recovered/Resolved]
  - Blood glucose increased [Recovered/Resolved]
  - Blood glucose increased [Recovering/Resolving]
  - Intellectual disability [Unknown]

NARRATIVE: CASE EVENT DATE: 1994
